FAERS Safety Report 9020322 (Version 1)
Quarter: 2013Q1

REPORT INFORMATION
  Report Type: Spontaneous
  Country: US (occurrence: US)
  Receive Date: 20130119
  Receipt Date: 20130119
  Transmission Date: 20140127
  Serious: No
  Sender: FDA-Public Use
  Company Number: US-ALLERGAN-1209246US

PATIENT
  Age: 31 Year
  Sex: Female

DRUGS (1)
  1. BOTOX? [Suspect]
     Indication: HYPERHIDROSIS
     Dosage: 25 UNK, UNK

REACTIONS (4)
  - Dizziness [Recovered/Resolved]
  - Cold sweat [Recovered/Resolved]
  - Blood pressure decreased [Recovered/Resolved]
  - Injection site pain [Recovering/Resolving]
